FAERS Safety Report 19871079 (Version 2)
Quarter: 2021Q4

REPORT INFORMATION
  Report Type: Report from Study
  Country: US (occurrence: US)
  Receive Date: 20210923
  Receipt Date: 20211022
  Transmission Date: 20220303
  Serious: Yes (Hospitalization, Other)
  Sender: FDA-Public Use
  Company Number: US-TAIHO ONCOLOGY INC-EU-2021-02631

PATIENT
  Age: 54 Year
  Sex: Female
  Weight: 74.46 kg

DRUGS (5)
  1. LONSURF [Suspect]
     Active Substance: TIPIRACIL HYDROCHLORIDE\TRIFLURIDINE
     Indication: Rectal cancer
     Dosage: CURRENT CYCLE UNKNOWN
     Route: 048
     Dates: start: 2021
  2. LONSURF [Suspect]
     Active Substance: TIPIRACIL HYDROCHLORIDE\TRIFLURIDINE
     Indication: Metastases to lymph nodes
  3. LONSURF [Suspect]
     Active Substance: TIPIRACIL HYDROCHLORIDE\TRIFLURIDINE
     Indication: Metastases to liver
  4. OMEPRAZOLE [Suspect]
     Active Substance: OMEPRAZOLE
     Indication: Product used for unknown indication
  5. STIVARGA [Suspect]
     Active Substance: REGORAFENIB
     Indication: Product used for unknown indication

REACTIONS (13)
  - Blood pressure fluctuation [Unknown]
  - Pyrexia [Unknown]
  - Sepsis [Unknown]
  - Fatigue [Unknown]
  - Pulmonary embolism [Unknown]
  - Blister [Unknown]
  - Weight decreased [Unknown]
  - Flatulence [Unknown]
  - Hypothyroidism [Unknown]
  - Insomnia [Unknown]
  - Feeding disorder [Unknown]
  - Abdominal pain upper [Unknown]
  - Disease progression [Unknown]

NARRATIVE: CASE EVENT DATE: 20210101
